FAERS Safety Report 15023073 (Version 1)
Quarter: 2018Q2

REPORT INFORMATION
  Report Type: Spontaneous
  Country: US (occurrence: US)
  Receive Date: 20180524
  Receipt Date: 20180524
  Transmission Date: 20180711
  Serious: Yes (Disabling)
  Sender: FDA-Public Use
  Company Number: None

PATIENT
  Age: 43 Year
  Sex: Female
  Weight: 58.97 kg

DRUGS (5)
  1. TYLENOL [Concomitant]
     Active Substance: ACETAMINOPHEN
  2. ACYCLOVIR. [Concomitant]
     Active Substance: ACYCLOVIR
  3. MIRENA [Suspect]
     Active Substance: LEVONORGESTREL
  4. PLAQUINEL [Concomitant]
  5. MOTRIN [Concomitant]
     Active Substance: IBUPROFEN

REACTIONS (4)
  - Impaired work ability [None]
  - Gait disturbance [None]
  - Idiopathic intracranial hypertension [None]
  - Memory impairment [None]

NARRATIVE: CASE EVENT DATE: 20120602
